FAERS Safety Report 23607926 (Version 1)
Quarter: 2024Q1

REPORT INFORMATION
  Report Type: Report from Study
  Country: CA (occurrence: CA)
  Receive Date: 20240307
  Receipt Date: 20240307
  Transmission Date: 20240410
  Serious: Yes (Other)
  Sender: FDA-Public Use
  Company Number: CA-BEH-2024168757

PATIENT
  Age: 75 Year
  Sex: Male
  Weight: 106.58 kg

DRUGS (20)
  1. HIZENTRA [Suspect]
     Active Substance: HUMAN IMMUNOGLOBULIN G
     Indication: Secondary immunodeficiency
     Dosage: 8 GRAM, QW
     Route: 065
     Dates: start: 20240207
  2. HIZENTRA [Suspect]
     Active Substance: HUMAN IMMUNOGLOBULIN G
     Dosage: UNK
     Route: 065
     Dates: start: 20240208
  3. HIZENTRA [Suspect]
     Active Substance: HUMAN IMMUNOGLOBULIN G
     Dosage: UNK
     Route: 065
     Dates: start: 20240214
  4. HIZENTRA [Suspect]
     Active Substance: HUMAN IMMUNOGLOBULIN G
     Dosage: UNK
     Route: 065
  5. HIZENTRA [Suspect]
     Active Substance: HUMAN IMMUNOGLOBULIN G
     Dosage: UNK
     Route: 065
     Dates: start: 20240221
  6. HIZENTRA [Suspect]
     Active Substance: HUMAN IMMUNOGLOBULIN G
     Dosage: UNK
     Route: 065
     Dates: start: 20240228
  7. CYCLOBENZAPRINE [Concomitant]
     Active Substance: CYCLOBENZAPRINE
  8. ZOPICLONE [Concomitant]
     Active Substance: ZOPICLONE
  9. BUPROPION [Concomitant]
     Active Substance: BUPROPION
  10. TAMSULOSIN [Concomitant]
     Active Substance: TAMSULOSIN
  11. LAMIVUDINE [Concomitant]
     Active Substance: LAMIVUDINE
  12. CITALOPRAM [Concomitant]
     Active Substance: CITALOPRAM HYDROBROMIDE
  13. RABEPRAZOLE [Concomitant]
     Active Substance: RABEPRAZOLE
  14. DOXEPIN [Concomitant]
     Active Substance: DOXEPIN
  15. GABAPENTIN [Concomitant]
     Active Substance: GABAPENTIN
  16. LENALIDOMIDE [Concomitant]
     Active Substance: LENALIDOMIDE
  17. DEXAMETHASONE [Concomitant]
     Active Substance: DEXAMETHASONE
  18. HYDROMORPHONE [Concomitant]
     Active Substance: HYDROMORPHONE
  19. DILAUDID [Concomitant]
     Active Substance: HYDROMORPHONE HYDROCHLORIDE
  20. CALCIUM [Concomitant]
     Active Substance: CALCIUM

REACTIONS (7)
  - Grip strength decreased [Unknown]
  - Fine motor skill dysfunction [Unknown]
  - Localised infection [Recovering/Resolving]
  - No adverse event [Unknown]
  - Product use issue [Unknown]
  - Erythema [Unknown]
  - Plasma cell myeloma [Unknown]

NARRATIVE: CASE EVENT DATE: 20240221
